FAERS Safety Report 5533889-3 (Version None)
Quarter: 2007Q4

REPORT INFORMATION
  Report Type: 
  Country: None (occurrence: None)
  Receive Date: 20071129
  Receipt Date: 20071119
  Transmission Date: 20080405
  Serious: Yes (Death, Life-Threatening, Hospitalization, Disabling)
  Sender: FDA-Public Use
  Company Number: OSCN-NO-0711S-0464

PATIENT
  Age: 42 Year
  Sex: Male
  Weight: 100 kg

DRUGS (1)
  1. OMNISCAN [Suspect]
     Indication: DRUG USE FOR UNKNOWN INDICATION
     Dosage: 40 ML, SINGLE DOSE, I.V.
     Route: 042
     Dates: start: 20020424, end: 20020424

REACTIONS (9)
  - ATRIAL FLUTTER [None]
  - CARDIAC ARREST [None]
  - FEMORAL NECK FRACTURE [None]
  - HYPOAESTHESIA [None]
  - HYPOTENSION [None]
  - NEPHROGENIC SYSTEMIC FIBROSIS [None]
  - SENSATION OF PRESSURE [None]
  - SYSTEMIC SCLEROSIS [None]
  - TREATMENT FAILURE [None]
